FAERS Safety Report 10271635 (Version 1)
Quarter: 2014Q3

REPORT INFORMATION
  Report Type: Spontaneous
  Country: JP (occurrence: JP)
  Receive Date: 20140701
  Receipt Date: 20140701
  Transmission Date: 20150326
  Serious: Yes (Hospitalization, Other)
  Sender: FDA-Public Use
  Company Number: JP-SPECTRUM PHARMACEUTICALS, INC.-14-F-JP-00108

PATIENT
  Age: 77 Year
  Sex: Male

DRUGS (3)
  1. TEGAFUR [Suspect]
     Active Substance: TEGAFUR
     Indication: COLON CANCER STAGE III
     Route: 042
  2. LEUCOVORIN                         /00566701/ [Suspect]
     Active Substance: LEUCOVORIN
     Indication: COLON CANCER STAGE III
     Route: 042
  3. FLUOROURACIL. [Suspect]
     Active Substance: FLUOROURACIL
     Indication: COLON CANCER STAGE III
     Route: 042

REACTIONS (5)
  - Metastases to liver [None]
  - Hypoalbuminaemia [Unknown]
  - Clostridium difficile colitis [Recovered/Resolved]
  - Diarrhoea [Unknown]
  - Pyrexia [Unknown]
